FAERS Safety Report 5098564-0 (Version None)
Quarter: 2006Q3

REPORT INFORMATION
  Report Type: 
  Country: None (occurrence: None)
  Receive Date: 20060906
  Receipt Date: 20060303
  Transmission Date: 20061208
  Serious: No
  Sender: FDA-Public Use
  Company Number: US-GLAXOSMITHKLINE-A0596009A

PATIENT
  Sex: Female

DRUGS (11)
  1. REQUIP [Suspect]
     Indication: RESTLESS LEGS SYNDROME
     Dosage: 1.25MG PER DAY
     Route: 048
     Dates: start: 20051101
  2. GABITRIL [Concomitant]
  3. KEPPRA [Concomitant]
  4. ADVAIR DISKUS 100/50 [Concomitant]
  5. ACCOLATE [Concomitant]
  6. ALBUTEROL [Concomitant]
  7. FLONASE [Concomitant]
  8. ATENOLOL [Concomitant]
  9. IMITREX [Concomitant]
  10. ZOFRAN [Concomitant]
  11. GLYCOLAX [Concomitant]

REACTIONS (1)
  - RESTLESS LEGS SYNDROME [None]
